FAERS Safety Report 13118368 (Version 4)
Quarter: 2017Q1

REPORT INFORMATION
  Report Type: Report from Study
  Country: US (occurrence: US)
  Receive Date: 20170116
  Receipt Date: 20170306
  Transmission Date: 20170428
  Serious: Yes (Other)
  Sender: FDA-Public Use
  Company Number: US-009507513-1701USA005279

PATIENT
  Age: 62 Year
  Sex: Female
  Weight: 63.49 kg

DRUGS (4)
  1. SITAGLIPTIN PHOSPHATE (+) METFORMIN HYDROCHLORIDE [Suspect]
     Active Substance: METFORMIN HYDROCHLORIDE\SITAGLIPTIN PHOSPHATE
     Dosage: UNK
     Route: 048
  2. SITAGLIPTIN PHOSPHATE [Suspect]
     Active Substance: SITAGLIPTIN PHOSPHATE
     Indication: TYPE 2 DIABETES MELLITUS
  3. SITAGLIPTIN PHOSPHATE (+) METFORMIN HYDROCHLORIDE [Suspect]
     Active Substance: METFORMIN HYDROCHLORIDE\SITAGLIPTIN PHOSPHATE
     Dosage: UNK
     Route: 048
  4. SITAGLIPTIN PHOSPHATE [Suspect]
     Active Substance: SITAGLIPTIN PHOSPHATE
     Indication: BLOOD GLUCOSE ABNORMAL
     Dosage: STRENGH: 100 MG, ONCE PER DAY
     Route: 048
     Dates: start: 20161130, end: 20161227

REACTIONS (6)
  - Nausea [Recovered/Resolved]
  - Drug hypersensitivity [Unknown]
  - Vertigo [Recovered/Resolved]
  - Dizziness [Recovered/Resolved]
  - Loss of consciousness [Recovered/Resolved]
  - Drug ineffective [Unknown]

NARRATIVE: CASE EVENT DATE: 201612
